FAERS Safety Report 4272259-5 (Version None)
Quarter: 2004Q1

REPORT INFORMATION
  Report Type: 
  Country: None (occurrence: None)
  Receive Date: 20040114
  Receipt Date: 20040106
  Transmission Date: 20041129
  Serious: Yes (Hospitalization)
  Sender: FDA-Public Use
  Company Number: 2003110336

PATIENT
  Age: 75 Year
  Sex: Female

DRUGS (1)
  1. NEURONTIN [Suspect]
     Indication: EPILEPSY
     Dates: start: 20030101, end: 20030101

REACTIONS (3)
  - ATAXIA [None]
  - BALANCE DISORDER [None]
  - CEREBELLAR SYNDROME [None]
